FAERS Safety Report 7549782-0 (Version None)
Quarter: 2011Q2

REPORT INFORMATION
  Report Type: 
  Country: None (occurrence: None)
  Receive Date: 20110615
  Receipt Date: 20070402
  Transmission Date: 20111010
  Serious: Yes (Hospitalization)
  Sender: FDA-Public Use
  Company Number: PHFR2007GB01233

PATIENT
  Sex: Female

DRUGS (1)
  1. CLOZAPINE [Suspect]
     Indication: SCHIZOPHRENIA
     Dosage: 275 MG, QD
     Route: 048
     Dates: start: 20060707

REACTIONS (6)
  - VIRAL INFECTION [None]
  - RASH [None]
  - NAUSEA [None]
  - SWELLING FACE [None]
  - COLD SWEAT [None]
  - TREMOR [None]
